FAERS Safety Report 8262438-4 (Version None)
Quarter: 2012Q2

REPORT INFORMATION
  Report Type: 
  Country: None (occurrence: None)
  Receive Date: 20120405
  Receipt Date: 20120323
  Transmission Date: 20120825
  Serious: Yes (Other)
  Sender: FDA-Public Use
  Company Number: ZA-MYLANLABS-2012S1006635

PATIENT
  Age: 26 Year
  Sex: Female

DRUGS (4)
  1. PREDNISONE TAB [Suspect]
     Indication: IMMUNOSUPPRESSION
     Route: 065
  2. AMLODIPINE [Suspect]
     Indication: HYPERTENSION
     Route: 065
  3. NEORAL [Suspect]
     Indication: IMMUNOSUPPRESSION
     Dosage: TARGET TROUGH CONCENTRATION 50-150 MICROG/L
     Route: 065
  4. ENALAPRIL MALEATE [Suspect]
     Indication: HYPERTENSION
     Route: 065

REACTIONS (6)
  - CAESAREAN SECTION [None]
  - MATERNAL EXPOSURE DURING PREGNANCY [None]
  - HEPATIC ENZYME INCREASED [None]
  - PREGNANCY [None]
  - FOETAL DISTRESS SYNDROME [None]
  - NORMAL NEWBORN [None]
